FAERS Safety Report 11654626 (Version 1)
Quarter: 2015Q4

REPORT INFORMATION
  Report Type: Spontaneous
  Country: US (occurrence: None)
  Receive Date: 20151022
  Receipt Date: 20151022
  Transmission Date: 20160304
  Serious: Yes (Other)
  Sender: FDA-Public Use
  Company Number: None

PATIENT
  Age: 69 Year
  Sex: Male
  Weight: 93.2 kg

DRUGS (1)
  1. AMIODARONE [Suspect]
     Active Substance: AMIODARONE
     Indication: SURGERY
     Route: 048
     Dates: start: 20140624, end: 20150813

REACTIONS (2)
  - Injury corneal [None]
  - Visual impairment [None]

NARRATIVE: CASE EVENT DATE: 20150813
